FAERS Safety Report 8563698-2 (Version None)
Quarter: 2012Q3

REPORT INFORMATION
  Report Type: 
  Country: None (occurrence: None)
  Receive Date: 20120803
  Receipt Date: 20120726
  Transmission Date: 20120928
  Serious: No
  Sender: FDA-Public Use
  Company Number: US-BIOGENIDEC-2012BI028450

PATIENT
  Age: 28 Year
  Sex: Female

DRUGS (1)
  1. TYSABRI [Suspect]
     Indication: MULTIPLE SCLEROSIS
     Route: 042
     Dates: start: 20110517

REACTIONS (11)
  - DIPLOPIA [None]
  - PAIN IN EXTREMITY [None]
  - HYPOAESTHESIA [None]
  - FATIGUE [None]
  - VISION BLURRED [None]
  - EYELID PAIN [None]
  - GASTRITIS [None]
  - OCULAR HYPERAEMIA [None]
  - SENSATION OF HEAVINESS [None]
  - COORDINATION ABNORMAL [None]
  - ANAL FISTULA [None]
